FAERS Safety Report 26073611 (Version 2)
Quarter: 2025Q4

REPORT INFORMATION
  Report Type: Spontaneous
  Country: US (occurrence: US)
  Receive Date: 20251121
  Receipt Date: 20251230
  Transmission Date: 20260117
  Serious: Yes (Other)
  Sender: ALEXION PHARMACEUTICALS
  Company Number: US-AstraZeneca-CH-00994347A

PATIENT
  Sex: Male

DRUGS (1)
  1. ULTOMIRIS [Suspect]
     Active Substance: RAVULIZUMAB-CWVZ
     Dosage: UNK
     Route: 065

REACTIONS (6)
  - Suicide threat [Unknown]
  - Swollen tongue [Unknown]
  - Impaired work ability [Unknown]
  - Dysphagia [Unknown]
  - Condition aggravated [Unknown]
  - Asthenia [Unknown]
